FAERS Safety Report 8003112-9 (Version None)
Quarter: 2011Q4

REPORT INFORMATION
  Report Type: 
  Country: None (occurrence: None)
  Receive Date: 20111222
  Receipt Date: 20111207
  Transmission Date: 20120403
  Serious: Yes (Hospitalization)
  Sender: FDA-Public Use
  Company Number: PHHY2011US110877

PATIENT
  Sex: Female

DRUGS (1)
  1. ILARIS [Suspect]
     Indication: CRYOPYRIN ASSOCIATED PERIODIC SYNDROME
     Dosage: 150 MG, EVERY 8 WEEKS
     Route: 058
     Dates: start: 20070101, end: 20111101

REACTIONS (8)
  - CHILLS [None]
  - NIGHT SWEATS [None]
  - MICROCYTIC ANAEMIA [None]
  - PYREXIA [None]
  - PNEUMONIA [None]
  - DYSPNOEA [None]
  - CHEST PAIN [None]
  - CARDIAC MURMUR [None]
